FAERS Safety Report 10555092 (Version 7)
Quarter: 2015Q1

REPORT INFORMATION
  Report Type: Spontaneous
  Country: US (occurrence: US)
  Receive Date: 20141030
  Receipt Date: 20150330
  Transmission Date: 20150720
  Serious: Yes (Hospitalization, Other)
  Sender: FDA-Public Use
  Company Number: US-PFIZER INC-2014295276

PATIENT
  Age: 23 Year
  Sex: Female
  Weight: 78 kg

DRUGS (13)
  1. LEVOTHYROXINE [Concomitant]
     Active Substance: LEVOTHYROXINE
     Indication: THYROID DISORDER
     Dosage: 25 ?G, DAILY
     Route: 048
  2. ADVIL [Suspect]
     Active Substance: IBUPROFEN
     Indication: POST PROCEDURAL DISCOMFORT
  3. MIDODRINE [Concomitant]
     Active Substance: MIDODRINE
     Indication: SYNCOPE
     Dosage: 5 MG, 3X/DAY
     Route: 048
  4. KEPPRA [Concomitant]
     Active Substance: LEVETIRACETAM
     Dosage: 250 MG, 2X/DAY (250MG BID X 3 DAYS, 500MG BID X 3 DAYS, 750MG BID)
     Route: 048
  5. KEPPRA [Concomitant]
     Active Substance: LEVETIRACETAM
     Dosage: 750 MG, UNK (250MG BID X 3 DAYS, 500MG BID X 3 DAYS, 750MG BID)
  6. BENADRYL [Concomitant]
     Active Substance: DIPHENHYDRAMINE HYDROCHLORIDE
     Indication: HYPERSENSITIVITY
     Dosage: 25 MG, DAILY EACH NIGHT (AT BEDTIME)
     Route: 048
  7. METAMUCIL [Concomitant]
     Active Substance: PLANTAGO SEED
     Dosage: UNK, DAILY  (1TBSP ORAL DAILY )AT BEDTIME
     Route: 048
  8. ADVIL [Suspect]
     Active Substance: IBUPROFEN
     Indication: PAIN
     Dosage: 2 DF, 2X/DAY
     Route: 048
     Dates: start: 20141022, end: 20141023
  9. ADVIL [Suspect]
     Active Substance: IBUPROFEN
     Indication: PROCEDURAL PAIN
  10. ZOLOFT [Concomitant]
     Active Substance: SERTRALINE HYDROCHLORIDE
     Indication: SYNCOPE
     Dosage: 50 MG, DAILY
     Route: 048
  11. METAMUCIL [Concomitant]
     Active Substance: PLANTAGO SEED
     Indication: MEDICAL DIET
     Dosage: DAILY AT BEDTIME
  12. MAXALT [Concomitant]
     Active Substance: RIZATRIPTAN BENZOATE
     Indication: MIGRAINE
     Dosage: 10 MG, AS NEEDED (DAILY AS NEEDED)
     Route: 048
  13. KEPPRA [Concomitant]
     Active Substance: LEVETIRACETAM
     Dosage: 500 MG, 2X/DAY (250MG BID X 3 DAYS, 500MG BID X 3 DAYS, 750MG BID)
     Route: 048

REACTIONS (14)
  - Tongue discolouration [Recovering/Resolving]
  - Contusion [Unknown]
  - Seizure [Recovering/Resolving]
  - Angioedema [Unknown]
  - Tongue blistering [Not Recovered/Not Resolved]
  - Tongue disorder [Unknown]
  - Road traffic accident [Recovering/Resolving]
  - Tongue haematoma [Not Recovered/Not Resolved]
  - Tongue haemorrhage [Unknown]
  - Swollen tongue [Recovered/Resolved]
  - Speech disorder [Unknown]
  - Hypersensitivity [Not Recovered/Not Resolved]
  - Nausea [Not Recovered/Not Resolved]
  - Tongue injury [Unknown]

NARRATIVE: CASE EVENT DATE: 2014
